FAERS Safety Report 9537927 (Version 1)
Quarter: 2013Q3

REPORT INFORMATION
  Report Type: Spontaneous
  Country: TR (occurrence: TR)
  Receive Date: 20130919
  Receipt Date: 20130919
  Transmission Date: 20140515
  Serious: Yes (Other)
  Sender: FDA-Public Use
  Company Number: PHHY2013TR101232

PATIENT
  Age: 74 Year
  Sex: Male

DRUGS (2)
  1. METHOTREXATE [Suspect]
     Dosage: 7.5 MG PER WEEK
  2. METHOTREXATE [Suspect]
     Dosage: 20 MG DAILY

REACTIONS (10)
  - Toxicity to various agents [Recovered/Resolved]
  - Psoriasis [Recovered/Resolved]
  - Skin ulcer [Unknown]
  - Pain [Recovered/Resolved]
  - Skin hyperpigmentation [Recovered/Resolved]
  - Oral mucosa erosion [Recovered/Resolved]
  - Incorrect dose administered [Unknown]
  - Overdose [Unknown]
  - Alopecia [Unknown]
  - Fatigue [Unknown]
